FAERS Safety Report 18503083 (Version 1)
Quarter: 2020Q4

REPORT INFORMATION
  Report Type: Spontaneous
  Country: ES (occurrence: ES)
  Receive Date: 20201113
  Receipt Date: 20201113
  Transmission Date: 20210114
  Serious: Yes (Other)
  Sender: FDA-Public Use
  Company Number: NVSC2020ES299850

PATIENT
  Sex: Male

DRUGS (5)
  1. TRAMETINIB [Suspect]
     Active Substance: TRAMETINIB
     Indication: LUNG NEOPLASM MALIGNANT
     Route: 065
  2. DABRAFENIB [Suspect]
     Active Substance: DABRAFENIB
     Dosage: REDUCED DOSE
     Route: 065
  3. DABRAFENIB [Suspect]
     Active Substance: DABRAFENIB
     Indication: LUNG NEOPLASM MALIGNANT
     Route: 065
  4. TRAMETINIB [Suspect]
     Active Substance: TRAMETINIB
     Dosage: REDUCED DOSE
     Route: 065
  5. ANTICOAGULANTS [Concomitant]
     Active Substance: UNSPECIFIED INGREDIENT
     Indication: PRODUCT USED FOR UNKNOWN INDICATION
     Route: 065

REACTIONS (2)
  - Pulmonary fibrosis [Unknown]
  - Thrombosis [Unknown]
